FAERS Safety Report 12869797 (Version 4)
Quarter: 2018Q1

REPORT INFORMATION
  Report Type: Report from Study
  Country: US (occurrence: US)
  Receive Date: 20161020
  Receipt Date: 20180105
  Transmission Date: 20180508
  Serious: No
  Sender: FDA-Public Use
  Company Number: US-AMGEN-USASL2016063472

PATIENT
  Age: 75 Year
  Sex: Male
  Weight: 86.6 kg

DRUGS (1)
  1. REPATHA [Suspect]
     Active Substance: EVOLOCUMAB
     Indication: BLOOD CHOLESTEROL INCREASED
     Dosage: 140 MG, Q2WK
     Route: 065
     Dates: start: 201601, end: 20160518

REACTIONS (12)
  - Headache [Unknown]
  - Sleep disorder [Recovered/Resolved]
  - Sinusitis [Unknown]
  - Blood cholesterol abnormal [Recovered/Resolved]
  - Sinus disorder [Unknown]
  - High density lipoprotein abnormal [Recovered/Resolved]
  - Low density lipoprotein increased [Recovered/Resolved]
  - Blood glucose abnormal [Recovered/Resolved]
  - Blood triglycerides abnormal [Recovered/Resolved]
  - Drug ineffective [Unknown]
  - Productive cough [Unknown]
  - Night sweats [Recovered/Resolved]

NARRATIVE: CASE EVENT DATE: 201604
